FAERS Safety Report 6292809-7 (Version None)
Quarter: 2009Q3

REPORT INFORMATION
  Report Type: 
  Country: None (occurrence: None)
  Receive Date: 20090731
  Receipt Date: 20090721
  Transmission Date: 20100115
  Serious: Yes (Other)
  Sender: FDA-Public Use
  Company Number: US-WATSON-2009-05746

PATIENT
  Sex: Female

DRUGS (2)
  1. FENTANYL-50 [Suspect]
     Indication: NECK PAIN
     Dosage: 1 PATCH, Q2DAYS
     Route: 062
     Dates: start: 20090717
  2. FENTANYL-50 [Suspect]
     Dosage: 1 PATCH, Q3DAYS
     Route: 062
     Dates: start: 20080101

REACTIONS (13)
  - APPLICATION SITE EXFOLIATION [None]
  - APPLICATION SITE IRRITATION [None]
  - DRUG INEFFECTIVE [None]
  - DYSPNOEA [None]
  - ERYTHEMA [None]
  - FATIGUE [None]
  - HEADACHE [None]
  - HYPERHIDROSIS [None]
  - LIP SWELLING [None]
  - LOSS OF CONSCIOUSNESS [None]
  - OVERDOSE [None]
  - STAPHYLOCOCCAL INFECTION [None]
  - VISION BLURRED [None]
